FAERS Safety Report 10877780 (Version 1)
Quarter: 2015Q1

REPORT INFORMATION
  Report Type: Spontaneous
  Country: US (occurrence: None)
  Receive Date: 20150224
  Receipt Date: 20150224
  Transmission Date: 20150721
  Serious: No
  Sender: FDA-Public Use
  Company Number: None

PATIENT
  Age: 67 Year
  Sex: Female
  Weight: 68.95 kg

DRUGS (7)
  1. PROTONIX [Concomitant]
     Active Substance: PANTOPRAZOLE SODIUM
  2. ZOCOR [Concomitant]
     Active Substance: SIMVASTATIN
  3. LOPRESSOR [Concomitant]
     Active Substance: METOPROLOL TARTRATE
  4. LISINOPRIL. [Concomitant]
     Active Substance: LISINOPRIL
  5. ASPIRIN. [Concomitant]
     Active Substance: ASPIRIN
  6. CLOZAPINE. [Concomitant]
     Active Substance: CLOZAPINE
  7. DEXILANT [Suspect]
     Active Substance: DEXLANSOPRAZOLE
     Indication: GASTROOESOPHAGEAL REFLUX DISEASE
     Dosage: 1
     Route: 048

REACTIONS (6)
  - Product substitution issue [None]
  - Insomnia [None]
  - Product quality issue [None]
  - Agitation [None]
  - Hallucination, auditory [None]
  - Inhibitory drug interaction [None]

NARRATIVE: CASE EVENT DATE: 20150204
